FAERS Safety Report 7294321-5 (Version None)
Quarter: 2011Q1

REPORT INFORMATION
  Report Type: 
  Country: None (occurrence: None)
  Receive Date: 20110215
  Receipt Date: 20110207
  Transmission Date: 20110831
  Serious: Yes (Hospitalization, Other)
  Sender: FDA-Public Use
  Company Number: US-US-EMD SERONO, INC.-7024398

PATIENT
  Sex: Female
  Weight: 147 kg

DRUGS (5)
  1. ADVIL [Concomitant]
     Indication: BACK PAIN
  2. ADVIL [Concomitant]
     Indication: HEADACHE
  3. REBIF [Suspect]
     Indication: MULTIPLE SCLEROSIS
     Route: 058
     Dates: start: 20091106, end: 20101215
  4. GABAPENTIN [Concomitant]
     Indication: PAIN
  5. REBIF [Suspect]
     Route: 058

REACTIONS (7)
  - UPPER RESPIRATORY TRACT INFECTION [None]
  - PAIN IN EXTREMITY [None]
  - LUNG NEOPLASM [None]
  - MUSCULAR WEAKNESS [None]
  - URINARY TRACT INFECTION [None]
  - BLOOD PRESSURE INCREASED [None]
  - MULTIPLE SCLEROSIS RELAPSE [None]
